FAERS Safety Report 8506027-2 (Version None)
Quarter: 2012Q3

REPORT INFORMATION
  Report Type: 
  Country: None (occurrence: None)
  Receive Date: 20120712
  Receipt Date: 20120709
  Transmission Date: 20120928
  Serious: Yes (Death, Life-Threatening, Hospitalization)
  Sender: FDA-Public Use
  Company Number: DE-B.I. PHARMACEUTICALS,INC./RIDGEFIELD-2011-DE-06586DE

PATIENT
  Sex: Male

DRUGS (1)
  1. PRADAXA [Suspect]
     Indication: ATRIAL FIBRILLATION
     Dosage: 220 MG
     Route: 048
     Dates: end: 20111124

REACTIONS (6)
  - PROTHROMBIN TIME PROLONGED [None]
  - INTESTINAL HAEMORRHAGE [None]
  - ACUTE ABDOMEN [None]
  - VOLVULUS [None]
  - HAEMORRHAGE [None]
  - MULTI-ORGAN FAILURE [None]
